APPROVED DRUG PRODUCT: SUSTOL
Active Ingredient: GRANISETRON
Strength: 10MG/0.4ML (10MG/0.4ML)
Dosage Form/Route: INJECTABLE;SUBCUTANEOUS
Application: N022445 | Product #001
Applicant: HERON THERAPEUTICS INC
Approved: Aug 9, 2016 | RLD: Yes | RS: Yes | Type: RX